FAERS Safety Report 18660789 (Version 1)
Quarter: 2020Q4

REPORT INFORMATION
  Report Type: Spontaneous
  Country: DE (occurrence: TW)
  Receive Date: 20201224
  Receipt Date: 20201224
  Transmission Date: 20210114
  Serious: Yes (Other)
  Sender: FDA-Public Use
  Company Number: TW-ELI_LILLY_AND_COMPANY-TW202012011908

PATIENT
  Age: 43 Year
  Sex: Male
  Weight: 69 kg

DRUGS (9)
  1. KEMOPLAT [Concomitant]
     Active Substance: CISPLATIN
     Indication: TONGUE NEOPLASM MALIGNANT STAGE UNSPECIFIED
     Dosage: 62 MG, UNKNOWN
     Route: 041
     Dates: start: 20171127, end: 20180122
  2. OPDIVO [Concomitant]
     Active Substance: NIVOLUMAB
     Dosage: 100 MG, UNKNOWN
     Route: 041
     Dates: start: 20180726, end: 20190630
  3. KEMOPLAT [Concomitant]
     Active Substance: CISPLATIN
     Dosage: 84-93 MG, UNKNOWN
     Dates: start: 20180726, end: 20190630
  4. ERBITUX [Suspect]
     Active Substance: CETUXIMAB
     Indication: TONGUE NEOPLASM MALIGNANT STAGE UNSPECIFIED
     Dosage: UNK UNK, UNKNOWN
     Route: 041
     Dates: start: 20180726, end: 20190630
  5. KEMOPLAT [Concomitant]
     Active Substance: CISPLATIN
     Dosage: 120 MG, UNKNOWN
     Dates: start: 20180316
  6. KEMOPLAT [Concomitant]
     Active Substance: CISPLATIN
     Dosage: 40 MG, UNKNOWN
     Dates: start: 20180412, end: 20180514
  7. 5 FU [Concomitant]
     Active Substance: FLUOROURACIL
     Indication: TONGUE NEOPLASM MALIGNANT STAGE UNSPECIFIED
     Dosage: 1195 MG, UNKNOWN
     Dates: start: 20180316
  8. 5 FU [Concomitant]
     Active Substance: FLUOROURACIL
     Dosage: 840-930 MG, UNKNOWN
     Dates: start: 20180726, end: 20190630
  9. OPDIVO [Concomitant]
     Active Substance: NIVOLUMAB
     Indication: TONGUE NEOPLASM MALIGNANT STAGE UNSPECIFIED
     Dosage: 100 MG, UNK
     Route: 041
     Dates: start: 20180316

REACTIONS (8)
  - Anaemia [Unknown]
  - Fatigue [Unknown]
  - Neuropathy peripheral [Unknown]
  - Nephropathy toxic [Unknown]
  - Alopecia [Unknown]
  - Leukopenia [Unknown]
  - Stomatitis [Unknown]
  - Nausea [Unknown]

NARRATIVE: CASE EVENT DATE: 2018
